FAERS Safety Report 17946908 (Version 1)
Quarter: 2020Q2

REPORT INFORMATION
  Report Type: Spontaneous
  Country: FR (occurrence: FR)
  Receive Date: 20200626
  Receipt Date: 20200626
  Transmission Date: 20200714
  Serious: Yes (Other)
  Sender: FDA-Public Use
  Company Number: FR-UCBSA-2020025322

PATIENT
  Age: 85 Year
  Sex: Female
  Weight: 43 kg

DRUGS (5)
  1. LEVETIRACETAM. [Suspect]
     Active Substance: LEVETIRACETAM
     Indication: PRODUCT USED FOR UNKNOWN INDICATION
     Dosage: UNK
     Dates: start: 20200320
  2. NICARDIPINE [Suspect]
     Active Substance: NICARDIPINE
     Indication: PRODUCT USED FOR UNKNOWN INDICATION
     Dosage: UNK
     Dates: start: 20200320
  3. RAMIPRIL ZENTIVA [Suspect]
     Active Substance: RAMIPRIL
     Indication: CEREBROVASCULAR ACCIDENT
  4. RAMIPRIL ZENTIVA [Suspect]
     Active Substance: RAMIPRIL
     Indication: PARTIAL SEIZURES
     Dosage: 1.25 MG
     Route: 048
     Dates: start: 20200320
  5. ACETYLSALICYLIC ACID [Concomitant]
     Active Substance: ASPIRIN
     Indication: PRODUCT USED FOR UNKNOWN INDICATION
     Route: 065

REACTIONS (5)
  - Hot flush [Not Recovered/Not Resolved]
  - Hypertension [Not Recovered/Not Resolved]
  - Paraesthesia [Not Recovered/Not Resolved]
  - Erythema [Not Recovered/Not Resolved]
  - Cough [Not Recovered/Not Resolved]
